FAERS Safety Report 7985665-X (Version None)
Quarter: 2011Q4

REPORT INFORMATION
  Report Type: 
  Country: None (occurrence: None)
  Receive Date: 20111007
  Receipt Date: 20110825
  Transmission Date: 20120403
  Serious: No
  Sender: FDA-Public Use
  Company Number: 2011HGS-002528

PATIENT
  Sex: Female

DRUGS (1)
  1. BENLYSTA [Suspect]
     Indication: SYSTEMIC LUPUS ERYTHEMATOSUS
     Dosage: INTRAVENOUS DRIP
     Route: 041
     Dates: start: 20110101, end: 20110818

REACTIONS (10)
  - INFLUENZA LIKE ILLNESS [None]
  - HEADACHE [None]
  - MOOD ALTERED [None]
  - INSOMNIA [None]
  - JOINT SWELLING [None]
  - FATIGUE [None]
  - PAIN [None]
  - ASTHENIA [None]
  - NAIL DISORDER [None]
  - DRUG EFFECT DECREASED [None]
